FAERS Safety Report 8295040-9 (Version None)
Quarter: 2012Q2

REPORT INFORMATION
  Report Type: 
  Country: None (occurrence: None)
  Receive Date: 20120418
  Receipt Date: 20120411
  Transmission Date: 20120825
  Serious: Yes (Hospitalization, Other)
  Sender: FDA-Public Use
  Company Number: CA-ELI_LILLY_AND_COMPANY-CA201204003896

PATIENT
  Age: 82 Year
  Sex: Male

DRUGS (8)
  1. FORTEO [Suspect]
     Indication: OSTEOPOROSIS
     Dosage: 20 UG, QD
     Route: 058
     Dates: start: 20120207
  2. ASPIRIN [Concomitant]
     Dosage: 81 MG, UNK
  3. ENTACAPONE [Concomitant]
  4. LEVOCARB [Concomitant]
  5. DONEPEZIL HCL [Concomitant]
  6. VITAMIN D [Concomitant]
  7. GABAPENTIN [Concomitant]
  8. CALCIUM CARBONATE [Concomitant]

REACTIONS (4)
  - PNEUMONIA [None]
  - INFLUENZA [None]
  - DELUSIONAL DISORDER, UNSPECIFIED TYPE [None]
  - DEHYDRATION [None]
